FAERS Safety Report 8974797 (Version 1)
Quarter: 2012Q4

REPORT INFORMATION
  Report Type: 
  Country: CH (occurrence: CH)
  Receive Date: 20121219
  Receipt Date: 20121219
  Transmission Date: 20130627
  Serious: Yes (Other)
  Sender: FDA-Public Use
  Company Number: CH-MYLANLABS-2012S1025338

PATIENT
  Age: 61 Year
  Sex: Female

DRUGS (3)
  1. RIVAROXABAN [Suspect]
     Indication: ANTICOAGULANT THERAPY
     Dosage: 10 mg/day
     Route: 048
  2. IBUPROFEN [Suspect]
     Indication: ANALGESIC THERAPY
     Route: 065
  3. TRAMADOL [Concomitant]
     Indication: ANALGESIC THERAPY
     Route: 065

REACTIONS (1)
  - Extradural haematoma [Recovered/Resolved]
